FAERS Safety Report 4826702-0 (Version None)
Quarter: 2005Q4

REPORT INFORMATION
  Report Type: 
  Country: None (occurrence: None)
  Receive Date: 20051112
  Receipt Date: 20051103
  Transmission Date: 20060501
  Serious: Yes (Hospitalization)
  Sender: FDA-Public Use
  Company Number: US-ABBOTT-05P-163-0316508-00

PATIENT
  Sex: Female
  Weight: 86.26 kg

DRUGS (9)
  1. HUMIRA [Suspect]
     Indication: RHEUMATOID ARTHRITIS
     Route: 058
     Dates: start: 20040101, end: 20050801
  2. HUMIRA [Suspect]
     Route: 058
     Dates: start: 20051001
  3. METHOTREXATE SODIUM [Concomitant]
     Indication: RHEUMATOID ARTHRITIS
     Route: 058
     Dates: start: 19960101, end: 20050801
  4. FOLIC ACID [Concomitant]
     Indication: RHEUMATOID ARTHRITIS
     Route: 048
  5. ALENDRONATE SODIUM [Concomitant]
     Indication: OSTEOARTHRITIS
     Route: 048
  6. LEVOTHYROXINE SODIUM [Concomitant]
     Indication: AUTOIMMUNE THYROIDITIS
     Route: 048
  7. SERTRALINE HYDROCHLORIDE [Concomitant]
     Indication: DEPRESSION
     Route: 048
  8. PREDNISONE [Concomitant]
     Indication: RHEUMATOID ARTHRITIS
     Route: 048
  9. CALCIUM + D [Concomitant]
     Indication: OSTEOARTHRITIS
     Route: 048

REACTIONS (4)
  - ANKLE FRACTURE [None]
  - BACK PAIN [None]
  - FALL [None]
  - URINARY INCONTINENCE [None]
